FAERS Safety Report 6207490-2 (Version None)
Quarter: 2009Q2

REPORT INFORMATION
  Report Type: 
  Country: None (occurrence: None)
  Receive Date: 20090528
  Receipt Date: 20090521
  Transmission Date: 20091009
  Serious: Yes (Hospitalization)
  Sender: FDA-Public Use
  Company Number: US-PFIZER INC-2008021608

PATIENT
  Sex: Female

DRUGS (1)
  1. SUTENT [Suspect]
     Dosage: 50 MG, 28 DAYS ON, 14 DAYS OFF
     Route: 048
     Dates: start: 20080111

REACTIONS (2)
  - CONTUSION [None]
  - GAIT DISTURBANCE [None]
